FAERS Safety Report 5636390-1 (Version None)
Quarter: 2008Q1

REPORT INFORMATION
  Report Type: 
  Country: None (occurrence: None)
  Receive Date: 20080225
  Receipt Date: 20071221
  Transmission Date: 20080703
  Serious: Yes (Other)
  Sender: FDA-Public Use
  Company Number: A0696285A

PATIENT
  Age: 56 Year
  Sex: Male

DRUGS (3)
  1. VERAMYST [Suspect]
     Dosage: 1SPR PER DAY
     Route: 045
     Dates: start: 20070701, end: 20071001
  2. LIPITOR [Concomitant]
  3. LISINOPRIL [Concomitant]

REACTIONS (3)
  - BLINDNESS [None]
  - CATARACT [None]
  - VISION BLURRED [None]
